FAERS Safety Report 20575097 (Version 1)
Quarter: 2022Q1

REPORT INFORMATION
  Report Type: Spontaneous
  Country: US (occurrence: US)
  Receive Date: 20220310
  Receipt Date: 20220310
  Transmission Date: 20220424
  Serious: No
  Sender: FDA-Public Use
  Company Number: US-MTPC-MTDA2022-0005385

PATIENT
  Age: 49 Year
  Sex: Female

DRUGS (2)
  1. RADICAVA [Suspect]
     Active Substance: EDARAVONE
     Indication: Amyotrophic lateral sclerosis
     Dosage: 60 MILLIGRAM OVER ONE HOUR QD FOR 14 DAYS
     Route: 042
     Dates: start: 20220216
  2. RADICAVA [Suspect]
     Active Substance: EDARAVONE
     Dosage: 60 MILLIGRAM OVER ONE HOUR QD FOR 14 DAYS
     Route: 042
     Dates: start: 20220227

REACTIONS (1)
  - Tremor [Not Recovered/Not Resolved]

NARRATIVE: CASE EVENT DATE: 20220227
